FAERS Safety Report 20589510 (Version 1)
Quarter: 2022Q1

REPORT INFORMATION
  Report Type: Spontaneous
  Country: US (occurrence: None)
  Receive Date: 20220314
  Receipt Date: 20220314
  Transmission Date: 20220423
  Serious: Yes (Hospitalization)
  Sender: FDA-Public Use
  Company Number: None

PATIENT
  Age: 63 Year
  Sex: Female
  Weight: 70 kg

DRUGS (2)
  1. TERBINAFINE [Suspect]
     Active Substance: TERBINAFINE
     Indication: Fungal infection
     Dosage: FREQUENCY : DAILY;?
     Route: 048
     Dates: start: 20210513, end: 20210627
  2. TERBINAFINE [Suspect]
     Active Substance: TERBINAFINE
     Indication: Onychomycosis

REACTIONS (8)
  - Splenomegaly [None]
  - Hepatic lesion [None]
  - Acute hepatic failure [None]
  - Disease complication [None]
  - Infection [None]
  - Acute kidney injury [None]
  - Dialysis [None]
  - Hepatitis [None]

NARRATIVE: CASE EVENT DATE: 20210628
